FAERS Safety Report 23819701 (Version 1)
Quarter: 2024Q2

REPORT INFORMATION
  Report Type: Spontaneous
  Country: US (occurrence: None)
  Receive Date: 20240503
  Receipt Date: 20240503
  Transmission Date: 20240716
  Serious: Yes (Hospitalization)
  Sender: FDA-Public Use
  Company Number: None

PATIENT
  Age: 76 Year
  Sex: Male
  Weight: 96 kg

DRUGS (1)
  1. APIXABAN [Suspect]
     Active Substance: APIXABAN
     Indication: Atrial fibrillation
     Dosage: FREQUENCY : TWICE A DAY;?
     Route: 048
     Dates: start: 20210609

REACTIONS (6)
  - Deep vein thrombosis [None]
  - Urinary tract infection [None]
  - Therapy interrupted [None]
  - Haematuria [None]
  - Asthenia [None]
  - Failure to thrive [None]

NARRATIVE: CASE EVENT DATE: 20221219
